FAERS Safety Report 8794880 (Version 1)
Quarter: 2012Q4

REPORT INFORMATION
  Report Type: 
  Country: US (occurrence: US)
  Receive Date: 20120917
  Receipt Date: 20120917
  Transmission Date: 20130627
  Serious: No
  Sender: FDA-Public Use
  Company Number: US-009507513-1208USA010783

PATIENT

DRUGS (1)
  1. NUVARING [Suspect]
     Dosage: 1 ring for 3 weeks followed by a week free break
     Route: 067
     Dates: start: 20120820

REACTIONS (1)
  - Medical device complication [Unknown]
